FAERS Safety Report 16678981 (Version 1)
Quarter: 2019Q3

REPORT INFORMATION
  Report Type: Spontaneous
  Country: US (occurrence: US)
  Receive Date: 20190807
  Receipt Date: 20190807
  Transmission Date: 20191004
  Serious: No
  Sender: FDA-Public Use
  Company Number: US-SA-2019SA207256

PATIENT
  Sex: Female

DRUGS (1)
  1. DUPIXENT [Suspect]
     Active Substance: DUPILUMAB
     Indication: ASTHMA
     Dosage: 300 MG, QOW
     Route: 058
     Dates: start: 20190628

REACTIONS (7)
  - Injection site irritation [Unknown]
  - Throat irritation [Unknown]
  - Injection site reaction [Unknown]
  - Skin exfoliation [Unknown]
  - Eye irritation [Unknown]
  - Injection site oedema [Unknown]
  - Injection site pruritus [Unknown]
